FAERS Safety Report 6734970-3 (Version None)
Quarter: 2010Q2

REPORT INFORMATION
  Report Type: 
  Country: None (occurrence: None)
  Receive Date: 20100521
  Receipt Date: 20100516
  Transmission Date: 20101027
  Serious: Yes (Life-Threatening, Other)
  Sender: FDA-Public Use
  Company Number: CA-PFIZER INC-2010055364

PATIENT
  Age: 34 Year
  Sex: Female

DRUGS (5)
  1. LIPITOR [Suspect]
     Indication: MACROANGIOPATHY
     Dosage: 10 MG, 1X/DAY
     Route: 048
     Dates: start: 20100428, end: 20100502
  2. HUMULIN N [Concomitant]
     Indication: DIABETES MELLITUS
     Dosage: 25 UNITS, MORNING AND EVENING
     Route: 058
  3. HUMALOG [Concomitant]
     Indication: TYPE 1 DIABETES MELLITUS
     Dosage: 5-10 UNITS BEFORE MEALS
     Route: 058
  4. LANTUS [Concomitant]
     Indication: TYPE 1 DIABETES MELLITUS
     Dosage: 30 UNITS DAILY
     Route: 058
  5. PANTOPRAZOLE [Concomitant]
     Indication: GASTROOESOPHAGEAL REFLUX DISEASE
     Dosage: 40 MG, 1X/DAY
     Route: 048

REACTIONS (1)
  - BLOOD GLUCOSE INCREASED [None]
